FAERS Safety Report 15081884 (Version 4)
Quarter: 2020Q2

REPORT INFORMATION
  Report Type: Spontaneous
  Country: US (occurrence: US)
  Receive Date: 20180628
  Receipt Date: 20200615
  Transmission Date: 20200713
  Serious: No
  Sender: FDA-Public Use
  Company Number: US-PFIZER INC-2018260525

PATIENT
  Age: 69 Year
  Sex: Male
  Weight: 90.7 kg

DRUGS (6)
  1. ADVIL [Suspect]
     Active Substance: IBUPROFEN
     Indication: HEADACHE
  2. EQUATE IBUPROFEN [Suspect]
     Active Substance: IBUPROFEN
     Dosage: 2 DF, UNK
  3. ADVIL [Suspect]
     Active Substance: IBUPROFEN
     Indication: BACK PAIN
     Dosage: 2 DF, UNK
     Route: 048
  4. ADVIL [Suspect]
     Active Substance: IBUPROFEN
     Indication: MYALGIA
  5. ADVIL [Suspect]
     Active Substance: IBUPROFEN
     Indication: PAIN
  6. ROSUVASTATIN. [Concomitant]
     Active Substance: ROSUVASTATIN
     Indication: HYPERTENSION
     Dosage: 40 MG, UNK

REACTIONS (2)
  - Drug ineffective [Unknown]
  - Insomnia [Unknown]
